FAERS Safety Report 6831463-X (Version None)
Quarter: 2010Q3

REPORT INFORMATION
  Report Type: 
  Country: None (occurrence: None)
  Receive Date: 20100712
  Receipt Date: 20100706
  Transmission Date: 20110219
  Serious: Yes (Congenital Anomaly)
  Sender: FDA-Public Use
  Company Number: A0869410A

PATIENT
  Age: 42 Year
  Sex: Female

DRUGS (5)
  1. ZIAGEN [Suspect]
     Indication: ANTIRETROVIRAL THERAPY
     Dosage: 600MGD PER DAY
     Route: 048
     Dates: start: 20040205
  2. VIREAD [Suspect]
     Indication: ANTIRETROVIRAL THERAPY
     Dosage: 245MGD PER DAY
     Route: 048
     Dates: start: 20040205
  3. NORVIR [Suspect]
     Indication: ANTIRETROVIRAL THERAPY
     Dosage: 100MGD PER DAY
     Route: 048
     Dates: start: 20040205
  4. REYATAZ [Suspect]
     Indication: ANTIRETROVIRAL THERAPY
     Route: 048
     Dates: start: 20040205
  5. VIDEX [Suspect]
     Indication: ANTIRETROVIRAL THERAPY
     Dosage: 250MGD PER DAY
     Route: 048
     Dates: start: 20040205, end: 20090423

REACTIONS (2)
  - BENIGN HYDATIDIFORM MOLE [None]
  - DRUG EXPOSURE DURING PREGNANCY [None]
